FAERS Safety Report 13125997 (Version 25)
Quarter: 2019Q3

REPORT INFORMATION
  Report Type: Spontaneous
  Country: BR (occurrence: BR)
  Receive Date: 20170118
  Receipt Date: 20190919
  Transmission Date: 20191004
  Serious: Yes (Other)
  Sender: FDA-Public Use
  Company Number: BR-GLAXOSMITHKLINE-BR2016GSK017485

PATIENT
  Age: 64 Year
  Sex: Female
  Weight: 78 kg

DRUGS (8)
  1. GLUCOSAMINE [Concomitant]
     Active Substance: GLUCOSAMINE
     Indication: ARTHROPATHY
     Dosage: UNK
  2. VITAMIN D [Concomitant]
     Active Substance: VITAMIN D NOS
     Indication: PRODUCT USED FOR UNKNOWN INDICATION
     Dosage: UNK
  3. DOLAMIN FLEX [Concomitant]
     Active Substance: CLONIXIN\CYCLOBENZAPRINE
     Indication: PRODUCT USED FOR UNKNOWN INDICATION
     Dosage: UNK
  4. BENLYSTA [Suspect]
     Active Substance: BELIMUMAB
     Indication: SYSTEMIC LUPUS ERYTHEMATOSUS
     Dosage: 800 MG, UNK
     Dates: start: 20150129
  5. GLIMEPIRIDE. [Concomitant]
     Active Substance: GLIMEPIRIDE
     Indication: DIABETES MELLITUS
     Dosage: UNK
  6. CHONDROITIN SULFATE [Concomitant]
     Active Substance: CHONDROITIN SULFATE (BOVINE)
     Indication: PRODUCT USED FOR UNKNOWN INDICATION
     Dosage: UNK
  7. REUQUINOL (HYDROXYCHLOROQUINE SULFATE) [Concomitant]
     Indication: PRODUCT USED FOR UNKNOWN INDICATION
     Dosage: UNK
  8. BENLYSTA [Suspect]
     Active Substance: BELIMUMAB
     Dosage: 120 MG, UNK

REACTIONS (39)
  - Retinal detachment [Unknown]
  - Weight decreased [Unknown]
  - Fatigue [Unknown]
  - Product dose omission [Recovered/Resolved]
  - Inappropriate schedule of product administration [Unknown]
  - Musculoskeletal stiffness [Unknown]
  - Skin discolouration [Unknown]
  - Inflammation [Unknown]
  - Lactose intolerance [Unknown]
  - Nasopharyngitis [Unknown]
  - Tooth abscess [Unknown]
  - Vitreous floaters [Unknown]
  - Skin disorder [Unknown]
  - Bone pain [Unknown]
  - Allergic sinusitis [Recovering/Resolving]
  - Weight increased [Not Recovered/Not Resolved]
  - Pain [Not Recovered/Not Resolved]
  - Memory impairment [Unknown]
  - Overdose [Unknown]
  - Spinal pain [Unknown]
  - Circumstance or information capable of leading to medication error [Not Recovered/Not Resolved]
  - Immunodeficiency [Unknown]
  - Malaise [Unknown]
  - Limb injury [Unknown]
  - Cataract [Unknown]
  - Torticollis [Recovered/Resolved]
  - Arthralgia [Recovered/Resolved]
  - Adverse reaction [Unknown]
  - Pain in extremity [Unknown]
  - Lung disorder [Unknown]
  - Underdose [Unknown]
  - Swelling [Unknown]
  - Influenza [Recovered/Resolved]
  - Bone density decreased [Recovered/Resolved]
  - Rhinitis [Recovering/Resolving]
  - Musculoskeletal pain [Unknown]
  - Diabetic retinopathy [Unknown]
  - Rhinorrhoea [Unknown]
  - Fall [Unknown]

NARRATIVE: CASE EVENT DATE: 20170110
